FAERS Safety Report 3770816 (Version 4)
Quarter: 2016Q1

REPORT INFORMATION
  Report Type: Spontaneous
  Country: JP (occurrence: JP)
  Receive Date: 20020228
  Receipt Date: 20160119
  Transmission Date: 20160526
  Serious: Yes (Death)
  Sender: FDA-Public Use
  Company Number: PHBS2002JP02552

PATIENT
  Age: 73 Year
  Sex: Male

DRUGS (12)
  1. VOLTAREN [Suspect]
     Active Substance: DICLOFENAC SODIUM
     Indication: BACK PAIN
     Dosage: 25 MG/DAY
     Route: 054
     Dates: start: 20011218, end: 20020114
  2. INDERAL [Concomitant]
     Active Substance: PROPRANOLOL HYDROCHLORIDE
     Dates: start: 200011
  3. MYONAL [Concomitant]
     Active Substance: EPERISONE HYDROCHLORIDE
  4. SOLON [Concomitant]
     Active Substance: SOFALCONE
     Dates: start: 200109
  5. SOLON [Concomitant]
     Active Substance: SOFALCONE
     Dates: start: 200112
  6. ALFACALCIDOL [Concomitant]
     Active Substance: ALFACALCIDOL
  7. OSTEN [Concomitant]
  8. VOLTAREN [Suspect]
     Active Substance: DICLOFENAC SODIUM
     Indication: BACK PAIN
     Dosage: 75 MG/DAY
     Route: 048
     Dates: start: 20010912, end: 20010926
  9. VOLTAREN [Suspect]
     Active Substance: DICLOFENAC SODIUM
     Dosage: UNKNOWN
     Route: 048
     Dates: start: 20011221, end: 20020104
  10. VOLTAREN [Suspect]
     Active Substance: DICLOFENAC SODIUM
     Dates: start: 20011218, end: 20020114
  11. SOLON [Concomitant]
     Active Substance: SOFALCONE
     Dates: start: 200201
  12. CALCIUM LACTATE [Concomitant]
     Active Substance: CALCIUM LACTATE
     Dates: start: 20011112

REACTIONS (6)
  - Tonic clonic movements [None]
  - Depressed level of consciousness [Fatal]
  - Pyrexia [Fatal]
  - Interstitial lung disease [Fatal]
  - Sepsis [None]
  - Dyspnoea [Fatal]

NARRATIVE: CASE EVENT DATE: 20020113
